FAERS Safety Report 8502276-8 (Version None)
Quarter: 2012Q2

REPORT INFORMATION
  Report Type: 
  Country: None (occurrence: None)
  Receive Date: 20120405
  Receipt Date: 20110315
  Transmission Date: 20120825
  Serious: Yes (Other)
  Sender: FDA-Public Use
  Company Number: PHEH2011US00455

PATIENT
  Sex: Female

DRUGS (3)
  1. RECLAST [Suspect]
  2. ZOMETA [Suspect]
  3. FOSAMAX [Suspect]
     Dates: start: 20050801, end: 20100401

REACTIONS (4)
  - INJURY [None]
  - DECREASED INTEREST [None]
  - PAIN [None]
  - FEMUR FRACTURE [None]
